FAERS Safety Report 7295266-7 (Version None)
Quarter: 2011Q1

REPORT INFORMATION
  Report Type: 
  Country: None (occurrence: None)
  Receive Date: 20110211
  Receipt Date: 20110211
  Transmission Date: 20110831
  Serious: Yes (Other)
  Sender: FDA-Public Use
  Company Number: None

PATIENT
  Age: 57 Year
  Sex: Male
  Weight: 90.7194 kg

DRUGS (1)
  1. GLYBURIDE AND METFORMIN HYDROCHLORIDE [Suspect]
     Indication: DIABETES MELLITUS
     Dosage: PO
     Route: 048
     Dates: start: 20070601, end: 20070727

REACTIONS (4)
  - PRODUCT SUBSTITUTION ISSUE [None]
  - PRODUCT FORMULATION ISSUE [None]
  - DERMATITIS [None]
  - PRURITUS GENERALISED [None]
